FAERS Safety Report 20653325 (Version 1)
Quarter: 2022Q1

REPORT INFORMATION
  Report Type: Report from Study
  Country: IT (occurrence: IT)
  Receive Date: 20220330
  Receipt Date: 20220330
  Transmission Date: 20220423
  Serious: Yes (Hospitalization, Other)
  Sender: FDA-Public Use
  Company Number: None

PATIENT
  Age: 15 Year
  Sex: Female

DRUGS (3)
  1. QUETIAPINE [Suspect]
     Active Substance: QUETIAPINE
     Indication: Product used for unknown indication
     Dosage: 11.2 GRAM, TOTAL
     Dates: start: 20220123, end: 20220123
  2. LITHIUM CARBONATE [Suspect]
     Active Substance: LITHIUM CARBONATE
     Indication: Product used for unknown indication
     Dosage: 50 DOSAGE FORM, TOTAL
     Dates: start: 20220123, end: 20220123
  3. ALPRAZOLAM [Suspect]
     Active Substance: ALPRAZOLAM
     Indication: Product used for unknown indication
     Dosage: 10 MILLIGRAM, TOTAL
     Dates: start: 20220123, end: 20220123

REACTIONS (6)
  - Sopor [Not Recovered/Not Resolved]
  - Agitation [Not Recovered/Not Resolved]
  - Vomiting [Not Recovered/Not Resolved]
  - Suicide attempt [Unknown]
  - Drug abuse [Unknown]
  - Intentional product misuse [Unknown]

NARRATIVE: CASE EVENT DATE: 20220124
